FAERS Safety Report 6930539-6 (Version None)
Quarter: 2010Q3

REPORT INFORMATION
  Report Type: 
  Country: None (occurrence: None)
  Receive Date: 20100818
  Receipt Date: 20100811
  Transmission Date: 20110219
  Serious: Yes (Hospitalization)
  Sender: FDA-Public Use
  Company Number: A0875198A

PATIENT
  Age: 36 Year
  Sex: Female

DRUGS (3)
  1. LAMOTRIGINE [Suspect]
     Indication: MOOD SWINGS
     Dosage: 100MG THREE TIMES PER DAY
     Route: 048
  2. PAXIL [Concomitant]
  3. SLEEP AID [Concomitant]

REACTIONS (2)
  - MIGRAINE [None]
  - PRURITUS [None]
